FAERS Safety Report 21555753 (Version 1)
Quarter: 2022Q4

REPORT INFORMATION
  Report Type: Spontaneous
  Country: US (occurrence: None)
  Receive Date: 20221103
  Receipt Date: 20221103
  Transmission Date: 20230113
  Serious: No
  Sender: FDA-Public Use
  Company Number: None

PATIENT
  Age: 31 Year
  Sex: Female
  Weight: 72 kg

DRUGS (5)
  1. TRINTELLIX [Suspect]
     Active Substance: VORTIOXETINE HYDROBROMIDE
     Indication: Anxiety
     Dosage: FREQUENCY : AT BEDTIME;?
     Route: 048
     Dates: start: 20220809
  2. TRINTELLIX [Suspect]
     Active Substance: VORTIOXETINE HYDROBROMIDE
     Indication: Depression
  3. TRINTELLIX [Concomitant]
     Active Substance: VORTIOXETINE HYDROBROMIDE
  4. VITAMIN C [Concomitant]
     Active Substance: ASCORBIC ACID
  5. MELATONIN [Concomitant]
     Active Substance: MELATONIN

REACTIONS (1)
  - Vomiting [None]

NARRATIVE: CASE EVENT DATE: 20221103
